FAERS Safety Report 8847758 (Version 4)
Quarter: 2013Q3

REPORT INFORMATION
  Report Type: Spontaneous
  Country: IL (occurrence: IL)
  Receive Date: 20121018
  Receipt Date: 20130711
  Transmission Date: 20140515
  Serious: Yes (Death, Hospitalization, Other)
  Sender: FDA-Public Use
  Company Number: IL-B.I. PHARMACEUTICALS,INC./RIDGEFIELD-2012-AP-00876RI

PATIENT
  Age: 73 Year
  Sex: Female

DRUGS (1)
  1. PRADAXA [Suspect]
     Indication: CARDIAC VALVE PROSTHESIS USER
     Dosage: 300 MG
     Route: 048
     Dates: start: 20120716, end: 20120911

REACTIONS (6)
  - Cardiogenic shock [Fatal]
  - Pulmonary oedema [Unknown]
  - Acute respiratory failure [Unknown]
  - Cardiac valve replacement complication [Unknown]
  - Aortic stenosis [Unknown]
  - Cardiac valve replacement complication [Unknown]
